FAERS Safety Report 14868359 (Version 1)
Quarter: 2018Q2

REPORT INFORMATION
  Report Type: Spontaneous
  Country: FR (occurrence: FR)
  Receive Date: 20180509
  Receipt Date: 20180509
  Transmission Date: 20180711
  Serious: Yes (Other)
  Sender: FDA-Public Use
  Company Number: FR-MERCK KGAA-2047438

PATIENT
  Age: 28 Year
  Sex: Female

DRUGS (2)
  1. LEVOTHYROX NF [Suspect]
     Active Substance: LEVOTHYROXINE SODIUM
  2. NOVOTHYROX [Suspect]
     Active Substance: LEVOTHYROXINE SODIUM
     Indication: PRODUCT USED FOR UNKNOWN INDICATION

REACTIONS (24)
  - Limb injury [None]
  - Constipation [None]
  - Road traffic accident [None]
  - Sleep disorder [None]
  - Personal relationship issue [None]
  - Stress [None]
  - Hypotension [None]
  - Anxiety [None]
  - Dizziness [None]
  - Fear [None]
  - Weight increased [None]
  - Depressed mood [None]
  - Irritability [None]
  - Maternal exposure during pregnancy [Recovered/Resolved]
  - Thinking abnormal [None]
  - Memory impairment [None]
  - Affective disorder [None]
  - Loss of personal independence in daily activities [None]
  - Alopecia [None]
  - Abortion of ectopic pregnancy [Recovered/Resolved]
  - Malaise [None]
  - General physical health deterioration [None]
  - Aggression [None]
  - Fatigue [None]

NARRATIVE: CASE EVENT DATE: 2017
